FAERS Safety Report 8927688 (Version 2)
Quarter: 2013Q1

REPORT INFORMATION
  Report Type: Report from Study
  Country: DE (occurrence: DE)
  Receive Date: 20121127
  Receipt Date: 20130129
  Transmission Date: 20140127
  Serious: Yes (Hospitalization, Disabling)
  Sender: FDA-Public Use
  Company Number: PHHO2012DE016580

PATIENT
  Age: 78 Year
  Sex: Female
  Weight: 75 kg

DRUGS (3)
  1. EVEROLIMUS [Suspect]
     Indication: BREAST CANCER METASTATIC
     Dosage: UNK
     Dates: start: 20121101, end: 20121114
  2. EVEROLIMUS [Suspect]
     Dates: start: 20121128, end: 20121128
  3. EXEMESTANE [Suspect]
     Indication: BREAST CANCER METASTATIC
     Dosage: UNK
     Dates: start: 20121101

REACTIONS (1)
  - Bile duct stone [Recovering/Resolving]
